FAERS Safety Report 7211228-X (Version None)
Quarter: 2011Q1

REPORT INFORMATION
  Report Type: 
  Country: None (occurrence: None)
  Receive Date: 20110105
  Receipt Date: 20101229
  Transmission Date: 20110831
  Serious: Yes (Hospitalization)
  Sender: FDA-Public Use
  Company Number: SE-JNJFOC-20101209191

PATIENT
  Age: 69 Year
  Sex: Female

DRUGS (9)
  1. REMICADE [Suspect]
     Indication: RHEUMATOID ARTHRITIS
     Route: 042
  2. METOJECT [Suspect]
     Indication: RHEUMATOID ARTHRITIS
  3. TENORMIN [Concomitant]
  4. REMICADE [Suspect]
     Route: 042
  5. METHOTREXATE [Suspect]
     Indication: RHEUMATOID ARTHRITIS
     Route: 048
  6. NAPROXEN [Concomitant]
  7. SIMVASTATIN [Concomitant]
  8. IMDUR [Concomitant]
  9. TROMBYL [Concomitant]

REACTIONS (3)
  - NEUROENDOCRINE CARCINOMA OF THE SKIN [None]
  - IVTH NERVE PARALYSIS [None]
  - METASTASES TO BONE MARROW [None]
